FAERS Safety Report 10519806 (Version 1)
Quarter: 2014Q4

REPORT INFORMATION
  Report Type: Spontaneous
  Country: US (occurrence: US)
  Receive Date: 20141015
  Receipt Date: 20141015
  Transmission Date: 20150528
  Serious: No
  Sender: FDA-Public Use
  Company Number: US-MYLANLABS-2014S1007417

PATIENT
  Age: 22 Year
  Sex: Male

DRUGS (1)
  1. ACYCLOVIR TABLETS, USP [Suspect]
     Active Substance: ACYCLOVIR
     Indication: HERPES OPHTHALMIC
     Dosage: 2000 MG,QD
     Route: 048
     Dates: start: 20140205, end: 20140206

REACTIONS (1)
  - Hemiparesis [Not Recovered/Not Resolved]

NARRATIVE: CASE EVENT DATE: 20140206
